FAERS Safety Report 22734640 (Version 2)
Quarter: 2024Q4

REPORT INFORMATION
  Report Type: Report from Study
  Country: BR (occurrence: BR)
  Receive Date: 20230721
  Receipt Date: 20241009
  Transmission Date: 20250115
  Serious: Yes (Hospitalization, Other)
  Sender: SANDOZ
  Company Number: BR-002147023-NVSC2022BR072493

PATIENT
  Age: 45 Year
  Sex: Female

DRUGS (3)
  1. ENALAPRIL [Suspect]
     Active Substance: ENALAPRIL
     Indication: Chagas^ cardiomyopathy
     Dosage: UNK
     Route: 048
     Dates: start: 20210329, end: 20211122
  2. AMIODARONE [Concomitant]
     Active Substance: AMIODARONE
     Indication: Arrhythmia
     Dosage: 400 MG
     Route: 065
     Dates: start: 200801
  3. CARVEDILOL [Concomitant]
     Active Substance: CARVEDILOL
     Indication: Cardiac failure
     Dosage: 50 MG
     Route: 065
     Dates: start: 20080101

REACTIONS (3)
  - Renal impairment [Unknown]
  - Cardiogenic shock [Recovered/Resolved]
  - Liver function test abnormal [Unknown]

NARRATIVE: CASE EVENT DATE: 20211204
